FAERS Safety Report 10178386 (Version 1)
Quarter: 2014Q2

REPORT INFORMATION
  Report Type: Spontaneous
  Country: GB (occurrence: GB)
  Receive Date: 20140519
  Receipt Date: 20140519
  Transmission Date: 20141212
  Serious: Yes (Other)
  Sender: FDA-Public Use
  Company Number: GB-ACCORD-023701

PATIENT
  Age: 76 Year
  Sex: Female

DRUGS (1)
  1. AMLODIPINE [Suspect]
     Indication: PRODUCT USED FOR UNKNOWN INDICATION
     Dosage: AMLODIPINE BESILATE

REACTIONS (1)
  - Lower respiratory tract infection [Unknown]
